FAERS Safety Report 5677366-8 (Version None)
Quarter: 2008Q1

REPORT INFORMATION
  Report Type: 
  Country: None (occurrence: None)
  Receive Date: 20080324
  Receipt Date: 20080312
  Transmission Date: 20080703
  Serious: Yes (Other)
  Sender: FDA-Public Use
  Company Number: RO-PFIZER INC-2008023793

PATIENT
  Age: 33 Year
  Sex: Female

DRUGS (2)
  1. ZELDOX (CAPSULES) [Suspect]
     Indication: SCHIZOPHRENIA, PARANOID TYPE
     Route: 048
     Dates: start: 20080201, end: 20080306
  2. HERBAL PREPARATION [Concomitant]

REACTIONS (2)
  - MYOCARDIAL ISCHAEMIA [None]
  - TACHYCARDIA [None]
